FAERS Safety Report 9441483 (Version 1)
Quarter: 2013Q3

REPORT INFORMATION
  Report Type: Spontaneous
  Country: US (occurrence: US)
  Receive Date: 20130805
  Receipt Date: 20130805
  Transmission Date: 20140515
  Serious: No
  Sender: FDA-Public Use
  Company Number: US-009507513-1307USA009099

PATIENT
  Age: 70 Year
  Sex: Male

DRUGS (5)
  1. COSOPT [Suspect]
     Indication: GLAUCOMA
     Dosage: 2 GTT, HS
     Route: 047
  2. COSOPT PF [Suspect]
     Indication: GLAUCOMA
     Dosage: UNK
     Route: 047
     Dates: start: 201307
  3. DORZOLAMIDE HYDROCHLORIDE/TIMOLOL MALEATE [Suspect]
     Route: 047
  4. ASPIRIN [Concomitant]
  5. VICODIN [Concomitant]

REACTIONS (5)
  - Eye irritation [Not Recovered/Not Resolved]
  - Ocular hyperaemia [Unknown]
  - Abdominal discomfort [Unknown]
  - Inappropriate schedule of drug administration [Unknown]
  - Drug administration error [Unknown]
